FAERS Safety Report 22199150 (Version 2)
Quarter: 2023Q2

REPORT INFORMATION
  Report Type: Report from Study
  Country: IT (occurrence: IT)
  Receive Date: 20230411
  Receipt Date: 20230428
  Transmission Date: 20230722
  Serious: Yes (Life-Threatening, Hospitalization)
  Sender: FDA-Public Use
  Company Number: None

PATIENT
  Age: 37 Year
  Sex: Female
  Weight: 70 kg

DRUGS (1)
  1. DILTIAZEM [Suspect]
     Active Substance: DILTIAZEM
     Indication: Tachycardia
     Dosage: 28 DILTIAZEM EXTENDED RELEASE TABLETS 300 MG FREQUENCY OF ADMINISTRATION: TOTAL
     Route: 065
     Dates: start: 20230311, end: 20230312

REACTIONS (2)
  - Multiple organ dysfunction syndrome [Not Recovered/Not Resolved]
  - Overdose [Not Recovered/Not Resolved]

NARRATIVE: CASE EVENT DATE: 20230312
